FAERS Safety Report 11891285 (Version 1)
Quarter: 2016Q1

REPORT INFORMATION
  Report Type: Spontaneous
  Country: FR (occurrence: FR)
  Receive Date: 20160106
  Receipt Date: 20160106
  Transmission Date: 20160526
  Serious: Yes (Life-Threatening, Hospitalization)
  Sender: FDA-Public Use
  Company Number: FR-HOSPIRA-3124884

PATIENT
  Age: 64 Year
  Sex: Male

DRUGS (3)
  1. FLUOROURACIL ACCORD [Suspect]
     Active Substance: FLUOROURACIL
     Indication: ADENOCARCINOMA PANCREAS
     Dosage: 1 CYCLE
     Route: 042
     Dates: start: 20151123, end: 20151126
  2. OXALIPLATINE ACCORD [Suspect]
     Active Substance: OXALIPLATIN
     Indication: ADENOCARCINOMA PANCREAS
     Dosage: 1 CYCLE
     Route: 042
     Dates: start: 20151123, end: 20151126
  3. IRINOTECAN HOSPIRA [Suspect]
     Active Substance: IRINOTECAN
     Indication: ADENOCARCINOMA PANCREAS
     Route: 042
     Dates: start: 20151123, end: 20151126

REACTIONS (1)
  - Cardio-respiratory arrest [Not Recovered/Not Resolved]

NARRATIVE: CASE EVENT DATE: 20151127
